FAERS Safety Report 8906430 (Version 1)
Quarter: 2012Q4

REPORT INFORMATION
  Report Type: Spontaneous
  Country: DK (occurrence: None)
  Receive Date: 20121107
  Receipt Date: 20121107
  Transmission Date: 20130627
  Serious: Yes (Other)
  Sender: FDA-Public Use
  Company Number: 2012MA012872

PATIENT
  Sex: Female

DRUGS (4)
  1. PACLITAXEL [Suspect]
     Indication: ENDOMETRIAL CANCER
  2. CARBOPLATIN (CARBOPLATIN) [Suspect]
     Indication: ENDOMETRIAL CANCER
  3. LANTUS [Suspect]
  4. CORTICOSTEROID [Suspect]

REACTIONS (2)
  - Blood glucose decreased [None]
  - Visual impairment [None]
